FAERS Safety Report 8196180-5 (Version None)
Quarter: 2012Q1

REPORT INFORMATION
  Report Type: 
  Country: None (occurrence: None)
  Receive Date: 20120307
  Receipt Date: 20120307
  Transmission Date: 20120608
  Serious: No
  Sender: FDA-Public Use
  Company Number: None

PATIENT
  Age: 54 Year
  Sex: Male

DRUGS (1)
  1. ISONIAZID [Suspect]
     Dates: start: 20070702, end: 20071001

REACTIONS (16)
  - HEPATIC NECROSIS [None]
  - OVERWEIGHT [None]
  - HEPATITIS CHOLESTATIC [None]
  - LIVER TRANSPLANT [None]
  - HEPATIC FIBROSIS [None]
  - LIVER DISORDER [None]
  - HEPATIC ENCEPHALOPATHY [None]
  - INTERNATIONAL NORMALISED RATIO INCREASED [None]
  - CORONARY ARTERY DISEASE [None]
  - OEDEMA PERIPHERAL [None]
  - LIVER INJURY [None]
  - HEPATIC FUNCTION ABNORMAL [None]
  - POST PROCEDURAL HAEMATOMA [None]
  - CENTRAL OBESITY [None]
  - TREMOR [None]
  - HEPATOTOXICITY [None]
